FAERS Safety Report 12378321 (Version 1)
Quarter: 2016Q2

REPORT INFORMATION
  Report Type: Report from Study
  Country: US (occurrence: US)
  Receive Date: 20160517
  Receipt Date: 20160517
  Transmission Date: 20160815
  Serious: No
  Sender: FDA-Public Use
  Company Number: US-MALLINCKRODT-T201600076

PATIENT
  Age: 48 Year
  Sex: Female

DRUGS (2)
  1. REPOSITORY CORTICOTROPIN INJECTION [Suspect]
     Active Substance: CORTICOTROPIN
     Indication: PROTEINURIA
     Dosage: UNK DOSE AND FREQUENCY
     Route: 065
     Dates: start: 20151221
  2. POTASSIUM [Concomitant]
     Active Substance: POTASSIUM

REACTIONS (5)
  - Eye swelling [Not Recovered/Not Resolved]
  - Bronchitis [Recovering/Resolving]
  - Drug dose omission [Unknown]
  - Swelling [Not Recovered/Not Resolved]
  - Pain [Not Recovered/Not Resolved]

NARRATIVE: CASE EVENT DATE: 20151231
